FAERS Safety Report 7303709-5 (Version None)
Quarter: 2011Q1

REPORT INFORMATION
  Report Type: 
  Country: None (occurrence: None)
  Receive Date: 20110221
  Receipt Date: 20110209
  Transmission Date: 20110831
  Serious: Yes (Other)
  Sender: FDA-Public Use
  Company Number: US-SANOFI-AVENTIS-2011SA009951

PATIENT

DRUGS (1)
  1. PLAVIX [Suspect]
     Route: 065

REACTIONS (2)
  - ARTERIAL RESTENOSIS [None]
  - NO THERAPEUTIC RESPONSE [None]
